FAERS Safety Report 8027388-7 (Version None)
Quarter: 2012Q1

REPORT INFORMATION
  Report Type: 
  Country: None (occurrence: None)
  Receive Date: 20120105
  Receipt Date: 20120105
  Transmission Date: 20120608
  Serious: Yes (Hospitalization)
  Sender: FDA-Public Use
  Company Number: None

PATIENT
  Sex: Female
  Weight: 62 kg

DRUGS (5)
  1. RITUXIMAB (MOAB C2B8 ANTI CD20,CHIMERIC) [Suspect]
     Dosage: 2870 MG
  2. DOXORUBICIN HCL [Suspect]
     Dosage: 363 MG
  3. PREDNISONE TAB [Suspect]
     Dosage: 1500 MG
  4. VINCRISTINE SULFATE [Suspect]
     Dosage: 10 MG
  5. CYCLOPHOSPHAMIDE [Suspect]
     Dosage: 5445 MG

REACTIONS (3)
  - CARDIAC FAILURE [None]
  - NEUROPATHY PERIPHERAL [None]
  - THROMBOCYTOPENIA [None]
